FAERS Safety Report 12397386 (Version 1)
Quarter: 2016Q2

REPORT INFORMATION
  Report Type: Spontaneous
  Country: None (occurrence: None)
  Receive Date: 20160523
  Receipt Date: 20160523
  Transmission Date: 20160815
  Serious: No
  Sender: FDA-Public Use
  Company Number: None

PATIENT
  Age: 43 Year
  Sex: Female
  Weight: 125.19 kg

DRUGS (13)
  1. LISINOPRIL. [Concomitant]
     Active Substance: LISINOPRIL
  2. ADVAIR HFA [Concomitant]
     Active Substance: FLUTICASONE PROPIONATE\SALMETEROL XINAFOATE
  3. FLUTICASONE [Concomitant]
     Active Substance: FLUTICASONE\FLUTICASONE PROPIONATE
  4. COUGH DROPS [Concomitant]
  5. MONTELUKAST SODIUM. [Concomitant]
     Active Substance: MONTELUKAST SODIUM
  6. TRIAMCINOLONE ACETONIDE. [Concomitant]
     Active Substance: TRIAMCINOLONE ACETONIDE
  7. RANITIDINE. [Concomitant]
     Active Substance: RANITIDINE
  8. MELOXICAM, 7.5 MG CADILA HEALTHCARE, INDIA [Suspect]
     Active Substance: MELOXICAM
     Indication: FIBROMYALGIA
     Dosage: 30 TABLET(S) TWICE A DAY TAKEN BY MOUTH
     Route: 048
     Dates: start: 20160119
  9. MELOXICAM, 7.5 MG CADILA HEALTHCARE, INDIA [Suspect]
     Active Substance: MELOXICAM
     Indication: ARTHRITIS
     Dosage: 30 TABLET(S) TWICE A DAY TAKEN BY MOUTH
     Route: 048
     Dates: start: 20160119
  10. CITALOPRAM [Concomitant]
     Active Substance: CITALOPRAM HYDROBROMIDE
  11. ATORVASTATIN CALCIUM. [Concomitant]
     Active Substance: ATORVASTATIN CALCIUM
  12. LEVOTHYROXINE. [Concomitant]
     Active Substance: LEVOTHYROXINE
  13. NYSTATIN. [Concomitant]
     Active Substance: NYSTATIN

REACTIONS (19)
  - Bronchitis [None]
  - Pruritus [None]
  - Dyspnoea [None]
  - Headache [None]
  - Dysphonia [None]
  - Oedema [None]
  - Fatigue [None]
  - Rash macular [None]
  - Aphthous ulcer [None]
  - Bursitis [None]
  - Nasopharyngitis [None]
  - Cough [None]
  - Dry mouth [None]
  - Arthralgia [None]
  - Contusion [None]
  - Drug interaction [None]
  - Wheezing [None]
  - Rash [None]
  - Eye burns [None]

NARRATIVE: CASE EVENT DATE: 20160121
